FAERS Safety Report 5323579-4 (Version None)
Quarter: 2007Q2

REPORT INFORMATION
  Report Type: 
  Country: None (occurrence: None)
  Receive Date: 20070514
  Receipt Date: 20070508
  Transmission Date: 20071010
  Serious: Yes (Other)
  Sender: FDA-Public Use
  Company Number: CA-ASTRAZENECA-2007UW09535

PATIENT
  Age: 825 Month
  Sex: Female
  Weight: 80.9 kg

DRUGS (5)
  1. CRESTOR [Suspect]
     Indication: BLOOD CHOLESTEROL
     Route: 048
     Dates: start: 20040101, end: 20061001
  2. CRESTOR [Suspect]
     Route: 048
     Dates: start: 20061001, end: 20061101
  3. CRESTOR [Suspect]
     Route: 048
     Dates: start: 20061201
  4. SOTALOL HYDROCHLORIDE [Concomitant]
     Indication: BLOOD PRESSURE
     Route: 048
     Dates: start: 20050101
  5. ASPIRIN [Concomitant]
     Route: 048
     Dates: start: 20020101

REACTIONS (1)
  - ATRIAL FIBRILLATION [None]
